FAERS Safety Report 14267530 (Version 1)
Quarter: 2017Q4

REPORT INFORMATION
  Report Type: Spontaneous
  Country: US (occurrence: US)
  Receive Date: 20171209
  Receipt Date: 20171209
  Transmission Date: 20180321
  Serious: Yes (Disabling, Other)
  Sender: FDA-Public Use
  Company Number: None

PATIENT
  Sex: Male
  Weight: 65.25 kg

DRUGS (4)
  1. GABBAPENTIN [Concomitant]
  2. FINASTERIDE 5MG [Suspect]
     Active Substance: FINASTERIDE
     Indication: BENIGN PROSTATIC HYPERPLASIA
     Dosage: ?          QUANTITY:1 TABLET(S);?
     Route: 048
  3. OMEPRAZOLE. [Concomitant]
     Active Substance: OMEPRAZOLE
  4. FLUTICASONE. [Concomitant]
     Active Substance: FLUTICASONE

REACTIONS (19)
  - Sexual dysfunction [None]
  - Body temperature decreased [None]
  - Cognitive disorder [None]
  - Fatigue [None]
  - Listless [None]
  - Skin atrophy [None]
  - Memory impairment [None]
  - Depression [None]
  - Muscle atrophy [None]
  - Tinnitus [None]
  - Hypoacusis [None]
  - Muscular weakness [None]
  - Dry skin [None]
  - Ejaculation disorder [None]
  - Anxiety [None]
  - Muscle twitching [None]
  - Chloasma [None]
  - Semen volume decreased [None]
  - Insomnia [None]

NARRATIVE: CASE EVENT DATE: 20171201
